FAERS Safety Report 9193760 (Version 1)
Quarter: 2013Q1

REPORT INFORMATION
  Report Type: Spontaneous
  Country: US (occurrence: None)
  Receive Date: 20130325
  Receipt Date: 20130325
  Transmission Date: 20140127
  Serious: Yes (Disabling)
  Sender: FDA-Public Use
  Company Number: None

PATIENT
  Sex: Female
  Weight: 73.48 kg

DRUGS (3)
  1. CIPRO [Suspect]
  2. LIPITOR [Concomitant]
  3. CRESTOR [Concomitant]

REACTIONS (4)
  - Urticaria [None]
  - Joint swelling [None]
  - Tendonitis [None]
  - Drug effect decreased [None]
